FAERS Safety Report 8428014-5 (Version None)
Quarter: 2012Q2

REPORT INFORMATION
  Report Type: 
  Country: None (occurrence: None)
  Receive Date: 20120611
  Receipt Date: 20120605
  Transmission Date: 20120825
  Serious: Yes (Other)
  Sender: FDA-Public Use
  Company Number: US-JNJFOC-20120603452

PATIENT
  Age: 62 Year
  Sex: Male

DRUGS (1)
  1. NICOTINE POLACRILEX [Suspect]
     Indication: SMOKING CESSATION THERAPY
     Dosage: APPROXIMATELY 16 PIECES OF CHEWING GUMS DAILY
     Route: 065
     Dates: start: 20020101

REACTIONS (5)
  - TOOTH DISORDER [None]
  - TOOTHACHE [None]
  - NICOTINE DEPENDENCE [None]
  - INTENTIONAL DRUG MISUSE [None]
  - PAIN IN JAW [None]
